FAERS Safety Report 16813542 (Version 1)
Quarter: 2019Q3

REPORT INFORMATION
  Report Type: Spontaneous
  Country: US (occurrence: US)
  Receive Date: 20190917
  Receipt Date: 20190917
  Transmission Date: 20191005
  Serious: No
  Sender: FDA-Public Use
  Company Number: US-JNJFOC-20190914832

PATIENT
  Age: 37 Year
  Sex: Female
  Weight: 85.35 kg

DRUGS (1)
  1. MENS ROGAINE EXTRA STRENGTH [Suspect]
     Active Substance: MINOXIDIL
     Indication: ALOPECIA
     Dosage: HALF OF CUP TWICE DAILY
     Route: 061
     Dates: start: 20190902

REACTIONS (6)
  - Application site pain [Recovered/Resolved]
  - Application site swelling [Recovering/Resolving]
  - Intentional product misuse [Unknown]
  - Application site erythema [Recovering/Resolving]
  - Product use issue [Unknown]
  - Overdose [Unknown]

NARRATIVE: CASE EVENT DATE: 20190902
